FAERS Safety Report 9303289 (Version 1)
Quarter: 2013Q2

REPORT INFORMATION
  Report Type: Spontaneous
  Country: US (occurrence: US)
  Receive Date: 20130522
  Receipt Date: 20130522
  Transmission Date: 20140414
  Serious: Yes (Death, Life-Threatening)
  Sender: FDA-Public Use
  Company Number: US-ROCHE-1222192

PATIENT
  Age: 76 Year
  Sex: Female
  Weight: 54.93 kg

DRUGS (2)
  1. RITUXAN [Suspect]
     Indication: SYSTEMIC LUPUS ERYTHEMATOSUS
     Route: 042
     Dates: start: 20120329, end: 20121008
  2. IMURAN [Suspect]
     Indication: SYSTEMIC LUPUS ERYTHEMATOSUS
     Route: 048
     Dates: start: 20121024, end: 20130427

REACTIONS (2)
  - Disseminated cryptococcosis [Fatal]
  - Staphylococcal bacteraemia [Recovered/Resolved]
